FAERS Safety Report 9304903 (Version 1)
Quarter: 2013Q2

REPORT INFORMATION
  Report Type: Spontaneous
  Country: JP (occurrence: JP)
  Receive Date: 20130523
  Receipt Date: 20130523
  Transmission Date: 20140414
  Serious: Yes (Hospitalization)
  Sender: FDA-Public Use
  Company Number: JP-MYLANLABS-2013S1010827

PATIENT
  Age: 31 Year
  Sex: Male

DRUGS (3)
  1. EPLERENONE [Suspect]
     Indication: ESSENTIAL HYPERTENSION
     Dosage: 50MG
     Route: 065
  2. HYDROCHLOROTHIAZIDE W/LOSARTAN [Interacting]
     Indication: ESSENTIAL HYPERTENSION
     Dosage: 12.5MG HYDROCHLOROTHIAZIDE, 50MG LOSARTAN
     Route: 065
     Dates: end: 2010
  3. DOXAZOSIN [Concomitant]
     Indication: ESSENTIAL HYPERTENSION
     Dosage: 1MG
     Route: 065
     Dates: end: 2010

REACTIONS (6)
  - Hyponatraemia [Recovered/Resolved]
  - Drug interaction [Recovered/Resolved]
  - Altered state of consciousness [Recovered/Resolved]
  - Heat stroke [Recovered/Resolved]
  - Convulsion [Recovered/Resolved]
  - Coma [Recovered/Resolved]
